FAERS Safety Report 23203959 (Version 1)
Quarter: 2023Q4

REPORT INFORMATION
  Report Type: Spontaneous
  Country: US (occurrence: US)
  Receive Date: 20231120
  Receipt Date: 20231120
  Transmission Date: 20240109
  Serious: No
  Sender: FDA-Public Use
  Company Number: US-ALKEM LABORATORIES LIMITED-US-ALKEM-2022-12587

PATIENT
  Age: 8 Decade
  Sex: Male

DRUGS (1)
  1. MINOCYCLINE [Suspect]
     Active Substance: MINOCYCLINE HYDROCHLORIDE
     Indication: Rosacea
     Dosage: 100 MILLIGRAM, BID
     Route: 048

REACTIONS (3)
  - Scleral discolouration [Unknown]
  - Nail discolouration [Unknown]
  - Conjunctival deposit [Unknown]
